FAERS Safety Report 26047443 (Version 1)
Quarter: 2025Q4

REPORT INFORMATION
  Report Type: Spontaneous
  Country: CA (occurrence: CA)
  Receive Date: 20251114
  Receipt Date: 20251114
  Transmission Date: 20260117
  Serious: Yes (Death, Congenital Anomaly, Other)
  Sender: ABBVIE
  Company Number: CA-ABBVIE-6546784

PATIENT

DRUGS (1)
  1. HUMIRA [Suspect]
     Active Substance: ADALIMUMAB
     Indication: Exposure during pregnancy
     Dosage: PATIENT ROUTE OF ADMINISTRATION- TRANSPLACENTAL, DOSE FORM: SOLUTION SUBCUTANEOUS
     Route: 065

REACTIONS (2)
  - Congenital anomaly [Fatal]
  - Foetal exposure during pregnancy [Unknown]
